FAERS Safety Report 23602337 (Version 3)
Quarter: 2024Q1

REPORT INFORMATION
  Report Type: Report from Study
  Country: US (occurrence: US)
  Receive Date: 20240306
  Receipt Date: 20240313
  Transmission Date: 20240410
  Serious: Yes (Hospitalization, Other)
  Sender: FDA-Public Use
  Company Number: US-002147023-NVSC2022US234139

PATIENT
  Sex: Male
  Weight: 70.295 kg

DRUGS (15)
  1. AMBRISENTAN [Suspect]
     Active Substance: AMBRISENTAN
     Indication: Product used for unknown indication
     Route: 065
  2. OPSUMIT [Suspect]
     Active Substance: MACITENTAN
     Indication: Product used for unknown indication
     Dosage: UNK
     Route: 065
  3. TREPROSTINIL [Suspect]
     Active Substance: TREPROSTINIL
     Dosage: 30 NG/KG/ MIN, CONT
     Route: 042
     Dates: start: 20220610
  4. TREPROSTINIL [Suspect]
     Active Substance: TREPROSTINIL
     Dosage: UNK, CONT 30 NG/KG/ MIN
     Route: 042
     Dates: start: 20221006
  5. TREPROSTINIL [Suspect]
     Active Substance: TREPROSTINIL
     Dosage: CONT (16 NG/KG/MIN))
     Route: 042
  6. TREPROSTINIL [Suspect]
     Active Substance: TREPROSTINIL
     Dosage: CONT (20 NG/KG/MIN))
     Route: 042
  7. TREPROSTINIL [Suspect]
     Active Substance: TREPROSTINIL
     Indication: Pulmonary arterial hypertension
     Dosage: CONT (10 NG/KG/MIN)
     Route: 042
     Dates: start: 20221006
  8. TREPROSTINIL [Suspect]
     Active Substance: TREPROSTINIL
     Dosage: CONT (30 NG/KG/MIN)
     Route: 042
     Dates: start: 20221006
  9. TREPROSTINIL [Suspect]
     Active Substance: TREPROSTINIL
     Dosage: CONT (30 NG/KG/MIN)
     Route: 042
  10. TREPROSTINIL [Suspect]
     Active Substance: TREPROSTINIL
     Dosage: 30 NG/KG/ MIN, CONT
     Route: 042
     Dates: start: 20220610
  11. TREPROSTINIL [Suspect]
     Active Substance: TREPROSTINIL
     Dosage: 30 NG/KG/ MIN, CONT
     Route: 058
     Dates: start: 20220610
  12. TREPROSTINIL [Suspect]
     Active Substance: TREPROSTINIL
     Dosage: CONT (12 NG/KG/MIN)
     Route: 042
  13. ORENITRAM [Concomitant]
     Active Substance: TREPROSTINIL
     Indication: Product used for unknown indication
     Dosage: 5.125 MG, TID
     Route: 065
  14. REMODULIN [Concomitant]
     Active Substance: TREPROSTINIL
     Indication: Product used for unknown indication
     Dosage: UNK
     Route: 065
  15. TADALAFIL [Concomitant]
     Active Substance: TADALAFIL
     Indication: Product used for unknown indication
     Dosage: UNK
     Route: 065

REACTIONS (24)
  - Catheter removal [Unknown]
  - Red blood cell count decreased [Unknown]
  - Device related infection [Unknown]
  - Pain in jaw [Not Recovered/Not Resolved]
  - Headache [Not Recovered/Not Resolved]
  - Internal haemorrhage [Unknown]
  - Wound [Recovered/Resolved]
  - Catheter site erythema [Unknown]
  - Catheter site swelling [Unknown]
  - Epistaxis [Not Recovered/Not Resolved]
  - Migraine [Unknown]
  - Swelling face [Unknown]
  - Eye contusion [Unknown]
  - Faeces discoloured [Unknown]
  - Illness [Unknown]
  - Peripheral swelling [Unknown]
  - Pain in extremity [Recovering/Resolving]
  - Dyspnoea [Recovering/Resolving]
  - Vomiting [Recovered/Resolved]
  - Oedema peripheral [Unknown]
  - Dyspnoea exertional [Unknown]
  - Fatigue [Not Recovered/Not Resolved]
  - Abdominal pain upper [Recovering/Resolving]
  - Intentional removal of drug delivery system by patient [Unknown]
